FAERS Safety Report 6238005-0 (Version None)
Quarter: 2009Q2

REPORT INFORMATION
  Report Type: 
  Country: None (occurrence: None)
  Receive Date: 20090617
  Receipt Date: 20090529
  Transmission Date: 20091009
  Serious: Yes (Other)
  Sender: FDA-Public Use
  Company Number: 6051841

PATIENT
  Age: 80 Year
  Sex: Female

DRUGS (8)
  1. LEVOTHYROXINE SODIUM [Suspect]
     Indication: HYPOTHYROIDISM
     Dosage: 1 DOSAGE FORMS (1 DOSAGE FORMS,1 IN 1 D), ORAL
     Route: 048
  2. PREVISCAN (20 MG, TABLET) (FLUINDIONE) [Suspect]
     Indication: PULMONARY EMBOLISM
     Dosage: 1 DOSAGE FORMS (1 DOSAGE FORMS,1 IN 1 D), ORAL
     Route: 048
     Dates: start: 20070801, end: 20070907
  3. PAROXETINE HYDROCHLORIDE [Suspect]
     Dosage: 2 DOSAGE FORMS (2 DOSAGE FORMS,1 D), ORAL
     Route: 048
  4. EQUANIL (400 MG, TABLET) (MEPROBAMATE) [Concomitant]
  5. EBIXA (10 MG, TABLET) (MEMANTINE HYDROCHLORIDE) [Concomitant]
  6. RISPERDAL [Concomitant]
  7. XANAX [Concomitant]
  8. EXELON (CAPSULE) (RIVASTIGMINE) [Concomitant]

REACTIONS (4)
  - AGITATION [None]
  - CONFUSIONAL STATE [None]
  - DRUG INTERACTION [None]
  - INTERNATIONAL NORMALISED RATIO INCREASED [None]
